FAERS Safety Report 5141230-3 (Version None)
Quarter: 2006Q4

REPORT INFORMATION
  Report Type: 
  Country: None (occurrence: None)
  Receive Date: 20061101
  Receipt Date: 20061020
  Transmission Date: 20070319
  Serious: Yes (Hospitalization)
  Sender: FDA-Public Use
  Company Number: CO-ELI_LILLY_AND_COMPANY-CO200610003998

PATIENT
  Age: 37 Year
  Sex: Female

DRUGS (1)
  1. GEMZAR [Suspect]
     Indication: ADENOCARCINOMA PANCREAS
     Dosage: 1600 MG/M2, UNK
     Dates: start: 20060713

REACTIONS (3)
  - KERATITIS INTERSTITIAL [None]
  - ORTHOPNOEA [None]
  - PYREXIA [None]
